FAERS Safety Report 5498368-0 (Version None)
Quarter: 2007Q4

REPORT INFORMATION
  Report Type: 
  Country: None (occurrence: None)
  Receive Date: 20071025
  Receipt Date: 20070716
  Transmission Date: 20080405
  Serious: Yes (Other)
  Sender: FDA-Public Use
  Company Number: AT-GENENTECH-250275

PATIENT
  Age: 74 Year
  Sex: Female

DRUGS (1)
  1. AVASTIN [Suspect]
     Indication: DRUG USE FOR UNKNOWN INDICATION
     Dosage: 0.04 ML, UNK
     Route: 031

REACTIONS (2)
  - VITREOUS OPACITIES [None]
  - VITRITIS [None]
